FAERS Safety Report 8361357-2 (Version None)
Quarter: 2012Q2

REPORT INFORMATION
  Report Type: 
  Country: None (occurrence: None)
  Receive Date: 20120514
  Receipt Date: 20120504
  Transmission Date: 20120825
  Serious: Yes (Hospitalization, Other)
  Sender: FDA-Public Use
  Company Number: 2012SP009363

PATIENT
  Sex: Female

DRUGS (3)
  1. VICTRELIS [Suspect]
     Indication: HEPATITIS C
     Dates: start: 20111224
  2. PEG-INTRON [Suspect]
     Indication: HEPATITIS C
     Dates: start: 20111125
  3. RIBAVIRIN [Suspect]
     Indication: HEPATITIS C
     Dates: start: 20111125

REACTIONS (19)
  - FALL [None]
  - WEIGHT FLUCTUATION [None]
  - NASOPHARYNGITIS [None]
  - BLOOD DISORDER [None]
  - ABASIA [None]
  - MEMORY IMPAIRMENT [None]
  - MALAISE [None]
  - INSOMNIA [None]
  - HEAD INJURY [None]
  - FEELING ABNORMAL [None]
  - ASTHENIA [None]
  - HYPONATRAEMIA [None]
  - BLOOD IRON INCREASED [None]
  - BALANCE DISORDER [None]
  - CATARACT [None]
  - FATIGUE [None]
  - COMA [None]
  - CONDITION AGGRAVATED [None]
  - MENTAL DISORDER [None]
